FAERS Safety Report 24051675 (Version 1)
Quarter: 2024Q3

REPORT INFORMATION
  Report Type: Spontaneous
  Country: MX (occurrence: None)
  Receive Date: 20240704
  Receipt Date: 20240704
  Transmission Date: 20241016
  Serious: Yes (Other)
  Sender: ASTRAZENECA
  Company Number: 2024A150320

PATIENT
  Sex: Female

DRUGS (2)
  1. DURVALUMAB [Suspect]
     Active Substance: DURVALUMAB
     Indication: Endometrial cancer
     Route: 042
  2. OLAPARIB [Suspect]
     Active Substance: OLAPARIB
     Indication: Endometrial cancer
     Route: 048

REACTIONS (2)
  - Hepatitis [Recovered/Resolved]
  - Off label use [Unknown]
